FAERS Safety Report 25895901 (Version 2)
Quarter: 2025Q4

REPORT INFORMATION
  Report Type: Spontaneous
  Country: JP (occurrence: JP)
  Receive Date: 20251008
  Receipt Date: 20251016
  Transmission Date: 20260118
  Serious: Yes (Other)
  Sender: TAKEDA
  Company Number: JP-teijin-202504340_FET_P_1

PATIENT
  Age: 9 Decade

DRUGS (1)
  1. FEBUXOSTAT [Suspect]
     Active Substance: FEBUXOSTAT
     Indication: Gout
     Dosage: 40 MILLIGRAM, QD

REACTIONS (2)
  - Renal impairment [Unknown]
  - Drug dose titration not performed [Unknown]
